FAERS Safety Report 24106733 (Version 2)
Quarter: 2024Q3

REPORT INFORMATION
  Report Type: Report from Study
  Country: EG (occurrence: EG)
  Receive Date: 20240717
  Receipt Date: 20240820
  Transmission Date: 20241017
  Serious: No
  Sender: SANDOZ
  Company Number: EG-SANDOZ-SDZ2024EG065872

PATIENT
  Sex: Male

DRUGS (1)
  1. OMNITROPE [Suspect]
     Active Substance: SOMATROPIN
     Indication: Product used for unknown indication
     Dosage: 1.3 MG
     Route: 058

REACTIONS (5)
  - Device issue [Unknown]
  - Therapy interrupted [Unknown]
  - Device use issue [Unknown]
  - Expired device used [Unknown]
  - Product availability issue [Unknown]
